FAERS Safety Report 9887606 (Version 2)
Quarter: 2014Q3

REPORT INFORMATION
  Report Type: Report from Study
  Country: MX (occurrence: MX)
  Receive Date: 20140211
  Receipt Date: 20140730
  Transmission Date: 20150326
  Serious: Yes (Disabling, Other)
  Sender: FDA-Public Use
  Company Number: MX-ROCHE-1345459

PATIENT
  Sex: Female

DRUGS (2)
  1. INSULIN [Concomitant]
     Active Substance: INSULIN NOS
     Route: 065
     Dates: start: 201112
  2. LUCENTIS [Suspect]
     Active Substance: RANIBIZUMAB
     Indication: DIABETIC RETINOPATHY
     Dosage: DOSE:0.5/0.05ML
     Route: 050
     Dates: start: 2013, end: 2013

REACTIONS (7)
  - Off label use [Unknown]
  - Blindness [Not Recovered/Not Resolved]
  - Disease progression [Not Recovered/Not Resolved]
  - Visual acuity reduced [Not Recovered/Not Resolved]
  - Fear of disease [Not Recovered/Not Resolved]
  - Physical disability [Not Recovered/Not Resolved]
  - Optic atrophy [Not Recovered/Not Resolved]
